FAERS Safety Report 23756302 (Version 1)
Quarter: 2024Q2

REPORT INFORMATION
  Report Type: Spontaneous
  Country: US (occurrence: None)
  Receive Date: 20240417
  Receipt Date: 20240417
  Transmission Date: 20240716
  Serious: No
  Sender: FDA-Public Use
  Company Number: None

PATIENT
  Age: 49 Year
  Sex: Male
  Weight: 155.25 kg

DRUGS (1)
  1. BOTOX [Suspect]
     Active Substance: ONABOTULINUMTOXINA
     Indication: Paresis anal sphincter
     Dosage: OTHER ROUTE : 100 UNITS INJECTED INTO ANUS.;?
     Route: 050
     Dates: start: 20240322, end: 20240322

REACTIONS (9)
  - Iatrogenic injury [None]
  - Paresis anal sphincter [None]
  - Condition aggravated [None]
  - Paradoxical drug reaction [None]
  - Haemorrhoids [None]
  - Abdominal discomfort [None]
  - Diarrhoea [None]
  - Anal incontinence [None]
  - Post procedural complication [None]

NARRATIVE: CASE EVENT DATE: 20240322
